FAERS Safety Report 4433142-5 (Version None)
Quarter: 2004Q3

REPORT INFORMATION
  Report Type: 
  Country: None (occurrence: None)
  Receive Date: 20040823
  Receipt Date: 20040809
  Transmission Date: 20050211
  Serious: Yes (Death, Hospitalization)
  Sender: FDA-Public Use
  Company Number: 193576

PATIENT
  Age: 58 Year
  Sex: Female
  Weight: 61.2356 kg

DRUGS (2)
  1. AVONEX [Suspect]
     Indication: MULTIPLE SCLEROSIS
     Dosage: 30 MCG QW IM
     Route: 030
     Dates: start: 20010503, end: 20031015
  2. AVONEX [Suspect]
     Indication: MULTIPLE SCLEROSIS
     Dosage: 30 MCG QW IM
     Route: 030
     Dates: start: 20031101, end: 20040530

REACTIONS (13)
  - AORTIC VALVE INCOMPETENCE [None]
  - CARDIAC FAILURE CONGESTIVE [None]
  - CHOLECYSTITIS [None]
  - CLOSTRIDIUM COLITIS [None]
  - COMA [None]
  - EPISTAXIS [None]
  - FEELING ABNORMAL [None]
  - LIVER DISORDER [None]
  - MITRAL VALVE INCOMPETENCE [None]
  - MOUTH HAEMORRHAGE [None]
  - PNEUMONIA [None]
  - PULMONARY HAEMORRHAGE [None]
  - RENAL DISORDER [None]
